FAERS Safety Report 25612690 (Version 1)
Quarter: 2025Q3

REPORT INFORMATION
  Report Type: Spontaneous
  Country: EU (occurrence: EU)
  Receive Date: 20250728
  Receipt Date: 20250728
  Transmission Date: 20251020
  Serious: Yes (Other)
  Sender: ROCHE
  Company Number: EU-ROCHE-10000343941

PATIENT
  Age: 70 Year
  Sex: Male

DRUGS (1)
  1. VABYSMO [Suspect]
     Active Substance: FARICIMAB-SVOA
     Indication: Neovascular age-related macular degeneration
     Route: 050

REACTIONS (3)
  - Uveitis [Unknown]
  - Visual acuity reduced [Unknown]
  - Vitreal cells [Unknown]

NARRATIVE: CASE EVENT DATE: 20250716
